FAERS Safety Report 16016022 (Version 2)
Quarter: 2019Q2

REPORT INFORMATION
  Report Type: Spontaneous
  Country: NZ (occurrence: NZ)
  Receive Date: 20190228
  Receipt Date: 20190411
  Transmission Date: 20190711
  Serious: Yes (Life-Threatening, Hospitalization, Other)
  Sender: FDA-Public Use
  Company Number: NZ-BAXTER-2019BAX003863

PATIENT
  Age: 57 Year
  Sex: Female

DRUGS (5)
  1. CARBOPLATIN. [Suspect]
     Active Substance: CARBOPLATIN
     Indication: FALLOPIAN TUBE CANCER STAGE IV
     Route: 065
     Dates: start: 20190218
  2. SODIUM CHLORIDE (VIAFLO) [Suspect]
     Active Substance: SODIUM CHLORIDE
     Route: 042
     Dates: start: 20190313, end: 20190313
  3. PACLITAXEL (EBEWE) [Suspect]
     Active Substance: PACLITAXEL
     Indication: OVARIAN CANCER
     Dosage: FIRST CYCLE
     Route: 042
     Dates: start: 20190218, end: 20190218
  4. SODIUM CHLORIDE (VIAFLO) [Suspect]
     Active Substance: SODIUM CHLORIDE
     Indication: MEDICATION DILUTION
     Dosage: FIRST CYCLE
     Route: 042
     Dates: start: 20190218, end: 20190218
  5. PACLITAXEL (EBEWE) [Suspect]
     Active Substance: PACLITAXEL
     Indication: FALLOPIAN TUBE CANCER STAGE IV
     Route: 042
     Dates: start: 20190313, end: 20190313

REACTIONS (13)
  - Oxygen saturation decreased [Recovered/Resolved]
  - Rash [Recovered/Resolved]
  - Chest pain [Recovered/Resolved]
  - Blood pressure increased [Recovering/Resolving]
  - Chest discomfort [Recovered/Resolved]
  - Dyspnoea [Recovered/Resolved]
  - Feeling abnormal [Recovering/Resolving]
  - Blood pressure decreased [Recovered/Resolved]
  - Back pain [Recovered/Resolved]
  - Erythema [Recovered/Resolved]
  - Heart rate increased [Recovering/Resolving]
  - Abdominal pain [Recovered/Resolved]
  - Hypersensitivity [Recovered/Resolved]

NARRATIVE: CASE EVENT DATE: 20190218
